FAERS Safety Report 9199113 (Version 1)
Quarter: 2013Q1

REPORT INFORMATION
  Report Type: Spontaneous
  Country: IN (occurrence: IN)
  Receive Date: 20130329
  Receipt Date: 20130329
  Transmission Date: 20140127
  Serious: Yes (Other)
  Sender: FDA-Public Use
  Company Number: IN-ASTELLAS-2013JP004330

PATIENT
  Age: 30 Year
  Sex: Male

DRUGS (7)
  1. TACROLIMUS [Suspect]
     Indication: IMMUNOSUPPRESSANT DRUG THERAPY
     Dosage: 4 MG, UNKNOWN/D
     Route: 065
  2. TACROLIMUS [Suspect]
     Route: 065
  3. MYCOPHENOLATE MOFETIL [Concomitant]
     Indication: IMMUNOSUPPRESSANT DRUG THERAPY
     Dosage: 1.5 G, UNKNOWN/D
     Route: 065
  4. PREDNISOLONE [Concomitant]
     Indication: IMMUNOSUPPRESSANT DRUG THERAPY
     Dosage: 7.5 MG, UNKNOWN/D
     Route: 065
  5. VORICONAZOLE [Concomitant]
     Indication: ANTIFUNGAL TREATMENT
     Dosage: 200 MG, UNKNOWN/D
     Route: 048
  6. METHYLPREDNISOLONE [Concomitant]
     Indication: PROPHYLAXIS AGAINST TRANSPLANT REJECTION
     Dosage: UNK
     Route: 042
  7. PREDNISOLONE [Concomitant]
     Indication: PROPHYLAXIS AGAINST TRANSPLANT REJECTION
     Route: 048

REACTIONS (6)
  - Aspergillus infection [Unknown]
  - Tuberculosis gastrointestinal [Unknown]
  - Pulmonary tuberculosis [Unknown]
  - Enterococcal infection [Unknown]
  - Pleurisy [Unknown]
  - Peritonitis [Unknown]
